FAERS Safety Report 25024667 (Version 1)
Quarter: 2025Q1

REPORT INFORMATION
  Report Type: Report from Study
  Country: GB (occurrence: GB)
  Receive Date: 20250228
  Receipt Date: 20250228
  Transmission Date: 20250409
  Serious: Yes (Other)
  Sender: SANDOZ
  Company Number: GB-002147023-NVSC2022GB294839

PATIENT
  Sex: Male

DRUGS (1)
  1. ERELZI [Suspect]
     Active Substance: ETANERCEPT-SZZS
     Indication: Arthropathy
     Dosage: 50 MG, QW
     Route: 058
     Dates: start: 20201214

REACTIONS (4)
  - Myocardial infarction [Unknown]
  - Insomnia [Unknown]
  - Malaise [Unknown]
  - Product use in unapproved indication [Unknown]
